FAERS Safety Report 5879114-5 (Version None)
Quarter: 2008Q3

REPORT INFORMATION
  Report Type: 
  Country: None (occurrence: None)
  Receive Date: 20080910
  Receipt Date: 20080910
  Transmission Date: 20090109
  Serious: No
  Sender: FDA-Public Use
  Company Number: None

PATIENT
  Age: 42 Year
  Sex: Female
  Weight: 61.2356 kg

DRUGS (4)
  1. BUPROPION HCL [Suspect]
     Dosage: 1 TABLET DAILY PO
     Route: 048
     Dates: start: 20080601
  2. WELLBUTRIN [Suspect]
  3. BUPROPION HCL [Suspect]
  4. BUPROPION HCL [Suspect]

REACTIONS (3)
  - DRUG INEFFECTIVE [None]
  - MEDICATION RESIDUE [None]
  - PHARMACEUTICAL PRODUCT COMPLAINT [None]
